FAERS Safety Report 23851727 (Version 1)
Quarter: 2024Q2

REPORT INFORMATION
  Report Type: Spontaneous
  Country: BR (occurrence: BR)
  Receive Date: 20240514
  Receipt Date: 20240514
  Transmission Date: 20240716
  Serious: Yes (Other)
  Sender: FDA-Public Use
  Company Number: BR-ORGANON-O2404BRA002587

PATIENT
  Sex: Female

DRUGS (1)
  1. ETONOGESTREL [Suspect]
     Active Substance: ETONOGESTREL
     Dosage: 1 IMPLANT ( MANUFACTURING DATE: 23-OCT-2022)
     Route: 065
     Dates: start: 202404, end: 202404

REACTIONS (4)
  - General anaesthesia [Unknown]
  - Complication of device insertion [Recovered/Resolved]
  - Device defective [Unknown]
  - Needle issue [Unknown]

NARRATIVE: CASE EVENT DATE: 20240401
